FAERS Safety Report 10070538 (Version 3)
Quarter: 2014Q2

REPORT INFORMATION
  Report Type: Spontaneous
  Country: FI (occurrence: FI)
  Receive Date: 20140410
  Receipt Date: 20140422
  Transmission Date: 20141212
  Serious: Yes (Hospitalization, Other)
  Sender: FDA-Public Use
  Company Number: FI-009507513-1404FIN004954

PATIENT
  Age: 68 Year
  Sex: Male

DRUGS (4)
  1. JANUMET [Suspect]
     Indication: TYPE 2 DIABETES MELLITUS
     Dosage: TOTAL DAILY DOSE 100/2000 MG, 1X2
     Route: 048
     Dates: start: 2013
  2. LEVEMIR [Concomitant]
     Indication: TYPE 2 DIABETES MELLITUS
     Dosage: 62 IUX1
  3. LOGIMAX [Concomitant]
     Dosage: UNK
  4. CALCICHEW D3 FORTE [Concomitant]
     Dosage: 1X1

REACTIONS (3)
  - Cerebral infarction [Recovered/Resolved with Sequelae]
  - Carotid artery stenosis [Not Recovered/Not Resolved]
  - White matter lesion [Unknown]
